FAERS Safety Report 16291319 (Version 1)
Quarter: 2019Q2

REPORT INFORMATION
  Report Type: Spontaneous
  Country: JP (occurrence: JP)
  Receive Date: 20190509
  Receipt Date: 20190509
  Transmission Date: 20190711
  Serious: Yes (Other)
  Sender: FDA-Public Use
  Company Number: JP-TEVA-2019-JP-1046975

PATIENT
  Age: 69 Year
  Sex: Female

DRUGS (3)
  1. LEVOTHYROXINE. [Concomitant]
     Active Substance: LEVOTHYROXINE
     Indication: PRIMARY HYPOTHYROIDISM
     Route: 048
  2. DOCETAXEL. [Suspect]
     Active Substance: DOCETAXEL
     Indication: LUNG ADENOCARCINOMA
     Dosage: RECEIVED THREE COURSES OF THIRD-LINE CHEMOTHERAPY
     Route: 065
     Dates: start: 201709, end: 201710
  3. RAMUCIRUMAB [Suspect]
     Active Substance: RAMUCIRUMAB
     Indication: LUNG ADENOCARCINOMA
     Dosage: RECEIVED THREE COURSES OF THIRD-LINE CHEMOTHERAPY
     Route: 065
     Dates: start: 201709, end: 201710

REACTIONS (2)
  - Arthralgia [Unknown]
  - Rhabdomyolysis [Unknown]
